FAERS Safety Report 16141633 (Version 1)
Quarter: 2019Q2

REPORT INFORMATION
  Report Type: Spontaneous
  Country: US (occurrence: US)
  Receive Date: 20190331
  Receipt Date: 20190331
  Transmission Date: 20190711
  Serious: Yes (Other)
  Sender: FDA-Public Use
  Company Number: None

PATIENT
  Age: 8 Year
  Sex: Male
  Weight: 72 kg

DRUGS (1)
  1. DAYTRANA [Suspect]
     Active Substance: METHYLPHENIDATE
     Indication: ATTENTION DEFICIT/HYPERACTIVITY DISORDER
     Route: 062

REACTIONS (5)
  - Mental disorder [None]
  - Chest pain [None]
  - Depersonalisation/derealisation disorder [None]
  - Cardiac disorder [None]
  - Feeling abnormal [None]

NARRATIVE: CASE EVENT DATE: 20080517
